FAERS Safety Report 5580697-3 (Version None)
Quarter: 2007Q4

REPORT INFORMATION
  Report Type: 
  Country: None (occurrence: None)
  Receive Date: 20071228
  Receipt Date: 20071217
  Transmission Date: 20080405
  Serious: Yes (Death, Life-Threatening, Other)
  Sender: FDA-Public Use
  Company Number: 2007-01139

PATIENT
  Age: 58 Year
  Sex: Male
  Weight: 122 kg

DRUGS (4)
  1. VELCADE [Suspect]
     Indication: MULTIPLE MYELOMA
     Dosage: 10.00 MG, INTRAVENOUS
     Route: 042
     Dates: start: 20061016, end: 20061211
  2. DEXAMETHASONE TAB [Concomitant]
  3. ZOMETA [Concomitant]
  4. ERYPO (EPOETIN ALFA) [Concomitant]

REACTIONS (5)
  - DRUG INEFFECTIVE [None]
  - DRUG TOXICITY [None]
  - NEOPLASM PROGRESSION [None]
  - PANCYTOPENIA [None]
  - THROMBOCYTOPENIA [None]
